FAERS Safety Report 4650932-4 (Version None)
Quarter: 2005Q2

REPORT INFORMATION
  Report Type: 
  Country: None (occurrence: None)
  Receive Date: 20050503
  Receipt Date: 20050420
  Transmission Date: 20051028
  Serious: Yes (Hospitalization, Disabling)
  Sender: FDA-Public Use
  Company Number: US-GLAXOSMITHKLINE-A0554927A

PATIENT
  Age: 35 Year
  Sex: Male
  Weight: 147 kg

DRUGS (25)
  1. PHAZYME ULTRA STRENGTH SOFTGELS [Suspect]
     Indication: FLATULENCE
     Route: 048
     Dates: start: 20000101
  2. VIOXX [Suspect]
     Route: 048
     Dates: end: 20030101
  3. LITHIUM CARBONATE [Suspect]
     Indication: BIPOLAR DISORDER
     Dosage: 2200MG PER DAY
     Route: 048
  4. IBUPROFEN [Suspect]
     Indication: PAIN
     Route: 048
  5. BEXTRA [Suspect]
     Indication: ARTHRITIS
     Route: 048
     Dates: start: 20030101
  6. MULTI-VITAMIN [Concomitant]
     Route: 048
  7. VITAMIN C [Concomitant]
     Route: 048
  8. ACIDOPHILUS [Concomitant]
     Route: 048
  9. GARLIC [Concomitant]
     Route: 048
  10. VITAMIN E [Concomitant]
     Route: 048
  11. NEURONTIN [Concomitant]
     Dosage: 2400MG PER DAY
     Route: 048
  12. CELEBREX [Concomitant]
     Dosage: 400MG PER DAY
     Route: 048
  13. PRILOSEC [Concomitant]
     Route: 048
  14. SINGULAIR [Concomitant]
     Dosage: 10MG PER DAY
     Route: 048
  15. CLARITIN [Concomitant]
     Route: 048
  16. IMITREX [Concomitant]
     Route: 048
  17. BUSPAR [Concomitant]
     Route: 048
  18. SLEEPING TABLETS (UNSPECIFIED) [Concomitant]
     Route: 048
  19. COLACE [Concomitant]
     Route: 048
  20. EFFEXOR [Concomitant]
     Route: 048
  21. PULMICORT [Concomitant]
     Route: 055
  22. ALBUTEROL [Concomitant]
     Route: 055
  23. SEREVENT [Concomitant]
     Route: 055
  24. ATROVENT [Concomitant]
     Route: 055
  25. ASPIRIN [Concomitant]
     Route: 048
     Dates: start: 19900101

REACTIONS (12)
  - ACTIVITIES OF DAILY LIVING IMPAIRED [None]
  - AMNESIA [None]
  - CEREBROVASCULAR ACCIDENT [None]
  - COMA [None]
  - DIALYSIS [None]
  - DIFFICULTY IN WALKING [None]
  - HALLUCINATION [None]
  - HEMIPLEGIA [None]
  - INFLUENZA [None]
  - MALAISE [None]
  - RENAL FAILURE [None]
  - SPEECH DISORDER [None]
